FAERS Safety Report 18942827 (Version 2)
Quarter: 2021Q1

REPORT INFORMATION
  Report Type: Spontaneous
  Country: FR (occurrence: FR)
  Receive Date: 20210225
  Receipt Date: 20210310
  Transmission Date: 20210420
  Serious: Yes (Hospitalization)
  Sender: FDA-Public Use
  Company Number: FR-JNJFOC-20210241148

PATIENT
  Sex: Female

DRUGS (2)
  1. ERDAFITINIB. [Suspect]
     Active Substance: ERDAFITINIB
     Indication: PRODUCT USED FOR UNKNOWN INDICATION
     Route: 065
  2. ERDAFITINIB. [Suspect]
     Active Substance: ERDAFITINIB
     Dosage: ON 18?FEB?2021, THE PATIENT REINTRODUCED THE TREATMENT WITH ERDAFITINIB
     Route: 065
     Dates: start: 20210218

REACTIONS (2)
  - Intestinal obstruction [Unknown]
  - Hyperphosphataemia [Unknown]
